FAERS Safety Report 8289799 (Version 5)
Quarter: 2012Q4

REPORT INFORMATION
  Report Type: 
  Country: US (occurrence: US)
  Receive Date: 20111214
  Receipt Date: 20121224
  Transmission Date: 20130627
  Serious: Yes (Hospitalization)
  Sender: FDA-Public Use
  Company Number: US-BIOGENIDEC-2011BI046379

PATIENT
  Age: 53 Year
  Sex: Female

DRUGS (2)
  1. TYSABRI [Suspect]
     Indication: MULTIPLE SCLEROSIS
     Route: 042
     Dates: start: 20111007, end: 20120427
  2. INTERFERON [Concomitant]
     Route: 042

REACTIONS (5)
  - Intestinal obstruction [Recovered/Resolved]
  - Enteritis infectious [Recovered/Resolved]
  - Fistula [Not Recovered/Not Resolved]
  - Pain [Unknown]
  - Infected fistula [Recovered/Resolved]
